FAERS Safety Report 15305620 (Version 1)
Quarter: 2018Q3

REPORT INFORMATION
  Report Type: Report from Study
  Country: None (occurrence: IT)
  Receive Date: 20180822
  Receipt Date: 20180822
  Transmission Date: 20181010
  Serious: Yes (Hospitalization, Disabling)
  Sender: FDA-Public Use
  Company Number: IT-ABBVIE-18S-083-2456449-00

PATIENT
  Age: 62 Year
  Sex: Male

DRUGS (1)
  1. DUODOPA [Suspect]
     Active Substance: CARBIDOPA\LEVODOPA
     Indication: PARKINSON^S DISEASE
     Dosage: MD: 10+3 CR: 4,8 ED: 4,5
     Route: 050
     Dates: start: 20171107

REACTIONS (4)
  - Shoulder operation [Unknown]
  - Haematoma [Unknown]
  - Spinal cord compression [Unknown]
  - Mobility decreased [Unknown]

NARRATIVE: CASE EVENT DATE: 201807
